FAERS Safety Report 10445189 (Version 2)
Quarter: 2014Q3

REPORT INFORMATION
  Report Type: Report from Study
  Country: US (occurrence: US)
  Receive Date: 20140910
  Receipt Date: 20140929
  Transmission Date: 20150326
  Serious: Yes (Other)
  Sender: FDA-Public Use
  Company Number: US-US-EMD SERONO, INC.-7319186

PATIENT
  Age: 67 Year
  Sex: Female

DRUGS (1)
  1. REBIF [Suspect]
     Active Substance: INTERFERON BETA-1A
     Indication: MULTIPLE SCLEROSIS
     Route: 058
     Dates: start: 20120905

REACTIONS (8)
  - Peripheral arterial occlusive disease [Not Recovered/Not Resolved]
  - Injection site pain [Recovering/Resolving]
  - Drug dependence [Unknown]
  - Hypertension [Unknown]
  - Arthralgia [Not Recovered/Not Resolved]
  - Aortic aneurysm [Not Recovered/Not Resolved]
  - Procedural pain [Not Recovered/Not Resolved]
  - Pulse abnormal [Unknown]

NARRATIVE: CASE EVENT DATE: 201406
